FAERS Safety Report 17172378 (Version 3)
Quarter: 2020Q1

REPORT INFORMATION
  Report Type: Spontaneous
  Country: NO (occurrence: NO)
  Receive Date: 20191219
  Receipt Date: 20200101
  Transmission Date: 20200409
  Serious: Yes (Life-Threatening, Disabling, Other)
  Sender: FDA-Public Use
  Company Number: NO-ABBVIE-19P-122-3201308-00

PATIENT
  Age: 36 Year
  Sex: Female
  Weight: 72 kg

DRUGS (9)
  1. LYRICA [Concomitant]
     Active Substance: PREGABALIN
     Indication: INSOMNIA
     Dosage: UNK
     Route: 048
     Dates: start: 201911
  2. LYRICA [Concomitant]
     Active Substance: PREGABALIN
     Indication: MUSCLE SPASMS
  3. LYRICA [Concomitant]
     Active Substance: PREGABALIN
     Indication: NEURALGIA
  4. PROCRIN [Suspect]
     Active Substance: LEUPROLIDE ACETATE
     Indication: ENDOMETRIOSIS
     Dosage: 3 MILLIGRAM
     Route: 058
     Dates: start: 20191004, end: 20191101
  5. CLIOVELLE [Suspect]
     Active Substance: ESTRADIOL VALERATE\NORETHINDRONE ACETATE
     Indication: MENOPAUSAL SYMPTOMS
     Dosage: UNK
     Route: 048
     Dates: start: 20191020, end: 20191117
  6. COQ10 [Concomitant]
     Active Substance: UBIDECARENONE
     Indication: PRODUCT USED FOR UNKNOWN INDICATION
     Dosage: UNK
  7. OMEGA-3 ACIDS [Concomitant]
     Active Substance: OMEGA-3 FATTY ACIDS
     Indication: PRODUCT USED FOR UNKNOWN INDICATION
     Dosage: UNK
  8. VITAMIN B12 [Concomitant]
     Active Substance: CYANOCOBALAMIN
     Indication: PRODUCT USED FOR UNKNOWN INDICATION
     Dosage: UNK
  9. PLAQUENIL [Concomitant]
     Active Substance: HYDROXYCHLOROQUINE SULFATE
     Indication: PRODUCT USED FOR UNKNOWN INDICATION
     Dosage: UNK

REACTIONS (24)
  - Exercise tolerance decreased [Recovered/Resolved]
  - Hypomania [Unknown]
  - Aphasia [Unknown]
  - Hypoaesthesia [Recovered/Resolved]
  - Amnesia [Recovered/Resolved]
  - Headache [Recovered/Resolved]
  - Agitation [Unknown]
  - Musculoskeletal stiffness [Unknown]
  - Insomnia [Unknown]
  - Hot flush [Unknown]
  - Migraine [Recovered/Resolved]
  - Suicidal ideation [Recovered/Resolved]
  - Pain of skin [Unknown]
  - Pyrexia [Unknown]
  - Neuralgia [Recovered/Resolved]
  - Thought blocking [Recovered/Resolved]
  - Pain [Recovered/Resolved]
  - Arthralgia [Unknown]
  - Burning sensation [Recovered/Resolved]
  - Paraesthesia [Recovered/Resolved]
  - Hyperacusis [Unknown]
  - Hypoaesthesia [Unknown]
  - Acute stress disorder [Unknown]
  - Muscle spasms [Unknown]

NARRATIVE: CASE EVENT DATE: 20191004
